FAERS Safety Report 6608965-4 (Version None)
Quarter: 2010Q1

REPORT INFORMATION
  Report Type: 
  Country: None (occurrence: None)
  Receive Date: 20100301
  Receipt Date: 20100217
  Transmission Date: 20100710
  Serious: Yes (Disabling, Other)
  Sender: FDA-Public Use
  Company Number: TR-PFIZER INC-2010014807

PATIENT
  Age: 35 Year
  Sex: Female

DRUGS (5)
  1. SOMAVERT [Suspect]
     Dosage: 10 MG, 1X/DAY
     Dates: start: 20100121
  2. SANDOSTATIN LAR [Concomitant]
     Dosage: UNK
  3. DELTACORTRIL [Concomitant]
     Dosage: UNK
  4. LEVOTIRON [Concomitant]
     Dosage: UNK
  5. MICARDIS [Concomitant]

REACTIONS (3)
  - BLINDNESS [None]
  - RETINAL HAEMORRHAGE [None]
  - RETINAL VEIN OCCLUSION [None]
